FAERS Safety Report 6875258-X (Version None)
Quarter: 2010Q3

REPORT INFORMATION
  Report Type: 
  Country: None (occurrence: None)
  Receive Date: 20100727
  Receipt Date: 20100713
  Transmission Date: 20110219
  Serious: No
  Sender: FDA-Public Use
  Company Number: US-JNJFOC-20100704252

PATIENT
  Sex: Female
  Weight: 86.18 kg

DRUGS (4)
  1. FENTANYL [Suspect]
     Indication: PELVIC PAIN
     Route: 062
  2. FENTANYL [Suspect]
     Route: 062
  3. FENTANYL [Suspect]
     Route: 062
  4. SOMA [Concomitant]
     Indication: PAIN
     Route: 048

REACTIONS (9)
  - DRUG EFFECT DECREASED [None]
  - FEELING ABNORMAL [None]
  - INSOMNIA [None]
  - NAUSEA [None]
  - PELVIC PAIN [None]
  - PSYCHOMOTOR HYPERACTIVITY [None]
  - TERMINAL INSOMNIA [None]
  - THERAPEUTIC RESPONSE DELAYED [None]
  - WRONG TECHNIQUE IN DRUG USAGE PROCESS [None]
